FAERS Safety Report 5035480-4 (Version None)
Quarter: 2006Q2

REPORT INFORMATION
  Report Type: 
  Country: None (occurrence: None)
  Receive Date: 20060526
  Receipt Date: 20060324
  Transmission Date: 20061013
  Serious: No
  Sender: FDA-Public Use
  Company Number: FABR-11460

PATIENT
  Age: 19 Year
  Sex: Male
  Weight: 73.7 kg

DRUGS (4)
  1. FABRAZYME [Suspect]
     Indication: FABRY'S DISEASE
     Dosage: 75 MG Q2WKS IV
     Route: 042
     Dates: start: 20060113
  2. ACETAMINOPHEN [Concomitant]
  3. BENADRYL [Concomitant]
  4. LAMICTAL [Concomitant]

REACTIONS (3)
  - CHEST PAIN [None]
  - DIZZINESS [None]
  - FLUSHING [None]
